FAERS Safety Report 7994649-7 (Version None)
Quarter: 2011Q4

REPORT INFORMATION
  Report Type: 
  Country: None (occurrence: None)
  Receive Date: 20111220
  Receipt Date: 20111212
  Transmission Date: 20120403
  Serious: Yes (Hospitalization)
  Sender: FDA-Public Use
  Company Number: US-BAYER-2011-041914

PATIENT
  Age: 42 Year
  Sex: Female
  Weight: 74.83 kg

DRUGS (12)
  1. DROSPIRENONE AND ETHINYL ESTRADIOL [Suspect]
     Indication: CONTRACEPTION
     Dosage: UNK
     Dates: start: 20080701, end: 20090901
  2. DROSPIRENONE AND ETHINYL ESTRADIOL [Suspect]
     Indication: MENSTRUATION IRREGULAR
  3. GABAPENTIN [Concomitant]
     Dosage: UNK
     Dates: start: 20090401, end: 20091015
  4. CYMBALTA [Concomitant]
  5. YASMIN [Suspect]
     Indication: POLYCYSTIC OVARIES
     Dosage: UNK
     Dates: start: 20021201, end: 20080701
  6. YASMIN [Suspect]
     Indication: MENSTRUATION IRREGULAR
  7. YAZ [Suspect]
     Dosage: UNK
     Dates: start: 20070201
  8. VITAMIN TAB [Concomitant]
     Dosage: UNK
     Dates: start: 19750101
  9. METFORMIN HCL [Concomitant]
     Dosage: 850 MG, BID
     Dates: start: 20021101
  10. DROSPIRENONE AND ETHINYL ESTRADIOL [Suspect]
     Indication: POLYCYSTIC OVARIES
  11. ENALAPRIL MALEATE [Concomitant]
     Dosage: 10 MG, QD
     Dates: start: 20090301
  12. SPIRONOLACTONE [Concomitant]
     Dosage: UNK
     Dates: start: 20021101

REACTIONS (14)
  - PULMONARY EMBOLISM [None]
  - EMOTIONAL DISTRESS [None]
  - CHEST PAIN [None]
  - PNEUMONIA [None]
  - PAIN [None]
  - ANXIETY [None]
  - PAIN IN EXTREMITY [None]
  - PULMONARY INFARCTION [None]
  - DYSPNOEA [None]
  - PULMONARY FUNCTION TEST DECREASED [None]
  - GENERAL PHYSICAL HEALTH DETERIORATION [None]
  - ANOXIA [None]
  - TENSION [None]
  - MENTAL DISORDER [None]
